FAERS Safety Report 25125296 (Version 1)
Quarter: 2025Q1

REPORT INFORMATION
  Report Type: Spontaneous
  Country: CA (occurrence: CA)
  Receive Date: 20250326
  Receipt Date: 20250326
  Transmission Date: 20250409
  Serious: Yes (Life-Threatening, Hospitalization, Other)
  Sender: NOVARTIS
  Company Number: CA-002147023-NVSC2025CA049789

PATIENT
  Age: 7 Month
  Sex: Female

DRUGS (15)
  1. OCTREOTIDE [Suspect]
     Active Substance: OCTREOTIDE
     Indication: Pleural effusion
     Route: 065
  2. OCTREOTIDE [Suspect]
     Active Substance: OCTREOTIDE
  3. OCTREOTIDE [Suspect]
     Active Substance: OCTREOTIDE
  4. PROPRANOLOL [Suspect]
     Active Substance: PROPRANOLOL HYDROCHLORIDE
     Indication: Lymphangioma
     Dosage: 1 MG/KG, QD
     Route: 048
  5. TRAMETINIB [Suspect]
     Active Substance: TRAMETINIB
     Indication: Lymphangioma
     Dosage: 0.025 MG/KG, QD
     Route: 065
  6. BLEOMYCIN [Suspect]
     Active Substance: BLEOMYCIN SULFATE
     Indication: Pleural effusion
     Route: 065
  7. DOXYCYCLINE [Suspect]
     Active Substance: DOXYCYCLINE
     Indication: Pleural effusion
     Route: 065
  8. INTERFERON [Suspect]
     Active Substance: INTERFERON
     Indication: Lymphangioma
     Route: 042
  9. PREDNISONE [Suspect]
     Active Substance: PREDNISONE
     Indication: Lymphangioma
     Route: 042
  10. PREDNISONE [Suspect]
     Active Substance: PREDNISONE
     Dosage: 1 MG/KG, QD
     Route: 048
  11. SIROLIMUS [Suspect]
     Active Substance: SIROLIMUS
     Indication: Lymphangioma
     Route: 048
  12. SIROLIMUS [Suspect]
     Active Substance: SIROLIMUS
     Route: 048
  13. SIROLIMUS [Suspect]
     Active Substance: SIROLIMUS
     Route: 048
  14. SIROLIMUS [Suspect]
     Active Substance: SIROLIMUS
     Route: 048
  15. VINCRISTINE [Suspect]
     Active Substance: VINCRISTINE
     Indication: Lymphangioma
     Dosage: 0.05 MG/KG, QW
     Route: 042

REACTIONS (13)
  - Adrenal suppression [Recovered/Resolved]
  - Cataract subcapsular [Recovered/Resolved]
  - Cushingoid [Recovered/Resolved]
  - Cytomegalovirus infection [Recovered/Resolved]
  - Drug ineffective [Recovered/Resolved]
  - Glomerulosclerosis [Recovered/Resolved]
  - Hypertension [Recovered/Resolved]
  - Infection [Recovered/Resolved]
  - Neuropathy peripheral [Recovered/Resolved]
  - Osteoporosis [Recovered/Resolved]
  - Proteinuria [Recovered/Resolved]
  - Pulmonary toxicity [Recovered/Resolved]
  - Renal disorder [Recovered/Resolved]
